FAERS Safety Report 8395100-8 (Version None)
Quarter: 2012Q2

REPORT INFORMATION
  Report Type: 
  Country: None (occurrence: None)
  Receive Date: 20120530
  Receipt Date: 20120521
  Transmission Date: 20120825
  Serious: Yes (Hospitalization)
  Sender: FDA-Public Use
  Company Number: MX-SANOFI-AVENTIS-2012SA036128

PATIENT
  Age: 58 Year
  Sex: Female
  Weight: 81.2 kg

DRUGS (6)
  1. ZOLPIDEM TARTRATE [Suspect]
     Route: 048
     Dates: start: 20111201
  2. SERTRALINE HYDROCHLORIDE [Concomitant]
     Route: 048
     Dates: end: 20111201
  3. SERTRALINE HYDROCHLORIDE [Concomitant]
     Route: 048
     Dates: start: 20111201, end: 20120201
  4. ZOLPIDEM TARTRATE [Suspect]
     Indication: INSOMNIA
     Route: 048
     Dates: start: 20100101, end: 20111201
  5. LEVOTHYROXINE SODIUM [Concomitant]
     Route: 048
     Dates: start: 20111201
  6. LEVOTHYROXINE SODIUM [Concomitant]
     Indication: HYPOTHYROIDISM
     Route: 048
     Dates: start: 19960101, end: 20111201

REACTIONS (3)
  - BLADDER DISORDER [None]
  - PERITONITIS [None]
  - INSOMNIA [None]
